FAERS Safety Report 16057962 (Version 2)
Quarter: 2019Q4

REPORT INFORMATION
  Report Type: Spontaneous
  Country: US (occurrence: US)
  Receive Date: 20190311
  Receipt Date: 20191104
  Transmission Date: 20200122
  Serious: Yes (Other)
  Sender: FDA-Public Use
  Company Number: US-VIFOR (INTERNATIONAL) INC.-VIT-2016-04533

PATIENT
  Age: 51 Year
  Sex: Male

DRUGS (9)
  1. VELTASSA [Suspect]
     Active Substance: PATIROMER
     Route: 048
     Dates: start: 20160804
  2. HUMALOG [Concomitant]
     Active Substance: INSULIN LISPRO
  3. LISINOPRIL. [Concomitant]
     Active Substance: LISINOPRIL
  4. LOVASTATIN. [Concomitant]
     Active Substance: LOVASTATIN
  5. METFORMIN HCL [Concomitant]
     Active Substance: METFORMIN HYDROCHLORIDE
  6. METAMUCIL FIBER [Concomitant]
  7. VELTASSA [Suspect]
     Active Substance: PATIROMER
     Indication: HYPERKALAEMIA
     Route: 048
     Dates: start: 20160804
  8. LANTUS [Concomitant]
     Active Substance: INSULIN GLARGINE
  9. LASIX [Concomitant]
     Active Substance: FUROSEMIDE

REACTIONS (5)
  - Constipation [Unknown]
  - Weight increased [Unknown]
  - Off label use [Unknown]
  - Product dose omission [Unknown]
  - Blindness [Unknown]

NARRATIVE: CASE EVENT DATE: 20160804
